FAERS Safety Report 16317503 (Version 1)
Quarter: 2019Q2

REPORT INFORMATION
  Report Type: Spontaneous
  Country: US (occurrence: US)
  Receive Date: 20190516
  Receipt Date: 20190516
  Transmission Date: 20190711
  Serious: No
  Sender: FDA-Public Use
  Company Number: US-009507513-1904USA008206

PATIENT
  Sex: Female

DRUGS (5)
  1. MAXALT [Suspect]
     Active Substance: RIZATRIPTAN BENZOATE
     Dosage: 5-10 MG, ONCE A WEEK IN HER SECOND TRIMESTER
  2. FLEXERIL [Concomitant]
     Active Substance: CYCLOBENZAPRINE HYDROCHLORIDE
  3. MAXALT [Suspect]
     Active Substance: RIZATRIPTAN BENZOATE
     Indication: MIGRAINE
     Dosage: 5-10 MG, 3 TIMES A WEEK IN HER FIRST TRIMESTER
     Route: 048
     Dates: start: 201805
  4. MAXALT [Suspect]
     Active Substance: RIZATRIPTAN BENZOATE
     Dosage: 5-10 MG AS NEEDED
     Route: 048
     Dates: start: 2011
  5. CLARITIN [Concomitant]
     Active Substance: LORATADINE

REACTIONS (1)
  - Maternal exposure during pregnancy [Recovered/Resolved]
